FAERS Safety Report 10410962 (Version 1)
Quarter: 2014Q2

REPORT INFORMATION
  Report Type: Spontaneous
  Country: US (occurrence: None)
  Receive Date: 20140604
  Receipt Date: 20140604
  Transmission Date: 20141212
  Serious: Yes (Other)
  Sender: FDA-Public Use
  Company Number: 20100608CINRY1512

PATIENT
  Age: 36 Year
  Sex: Male

DRUGS (1)
  1. CINRYZE [Suspect]
     Dosage: (1000 UNIT, EVERY 3-4 DAYS)
     Route: 042
     Dates: end: 201003

REACTIONS (3)
  - Off label use [None]
  - Swelling [None]
  - Hereditary angioedema [None]
